FAERS Safety Report 5477827-0 (Version None)
Quarter: 2007Q4

REPORT INFORMATION
  Report Type: 
  Country: None (occurrence: None)
  Receive Date: 20071002
  Receipt Date: 20070913
  Transmission Date: 20080405
  Serious: Yes (Hospitalization)
  Sender: FDA-Public Use
  Company Number: 2007EU002046

PATIENT
  Age: 56 Year
  Sex: Female

DRUGS (3)
  1. TACROLIMUS [Suspect]
     Indication: RENAL TRANSPLANT
  2. MYCOPHENOLATE MOFETIL [Suspect]
     Indication: RENAL TRANSPLANT
  3. ANTILYMPHOCYTE IMMUNOGLOBULIN      (ANTILYMPHOCYTE IMMUNOGLOBULIN (HOR [Suspect]
     Indication: RENAL TRANSPLANT

REACTIONS (13)
  - BLOOD CULTURE POSITIVE [None]
  - COMPLICATIONS OF TRANSPLANTED KIDNEY [None]
  - CULTURE URINE POSITIVE [None]
  - DEHYDRATION [None]
  - DIARRHOEA [None]
  - ESCHERICHIA INFECTION [None]
  - HYPOTENSION [None]
  - MALACOPLAKIA VESICAE [None]
  - NEUTROPHIL PERCENTAGE INCREASED [None]
  - PYREXIA [None]
  - RENAL FAILURE ACUTE [None]
  - RENAL TRANSPLANT [None]
  - WHITE BLOOD CELL COUNT INCREASED [None]
